FAERS Safety Report 26139325 (Version 1)
Quarter: 2025Q4

REPORT INFORMATION
  Report Type: Spontaneous
  Country: US (occurrence: US)
  Receive Date: 20251210
  Receipt Date: 20251210
  Transmission Date: 20260119
  Serious: Yes (Life-Threatening, Hospitalization)
  Sender: ACCORD
  Company Number: US-MLMSERVICE-20251119-PI718403-00108-1

PATIENT
  Age: 30 Year
  Sex: Male

DRUGS (1)
  1. CLOZAPINE [Suspect]
     Active Substance: CLOZAPINE
     Indication: Schizophrenia
     Dosage: POOR ADHERENCE TO CLOZAPINE 300MG NIGHTLY.

REACTIONS (7)
  - Catatonia [Unknown]
  - Hyperhidrosis [Unknown]
  - Irregular breathing [Unknown]
  - Haemodynamic instability [Unknown]
  - Drug withdrawal syndrome [Unknown]
  - Condition aggravated [Unknown]
  - Treatment noncompliance [Unknown]
